FAERS Safety Report 25179158 (Version 2)
Quarter: 2025Q2

REPORT INFORMATION
  Report Type: Report from Study
  Country: US (occurrence: US)
  Receive Date: 20250409
  Receipt Date: 20250519
  Transmission Date: 20250716
  Serious: Yes (Hospitalization, Other)
  Sender: OTSUKA
  Company Number: US-OTSUKA-2024_027292

PATIENT
  Age: 45 Year
  Sex: Male

DRUGS (3)
  1. TOLVAPTAN [Suspect]
     Active Substance: TOLVAPTAN
     Indication: Congenital cystic kidney disease
     Dosage: 30 MG, QD (UPON WAKING)
     Route: 048
     Dates: start: 20240917, end: 202505
  2. TOLVAPTAN [Suspect]
     Active Substance: TOLVAPTAN
     Dosage: 15 MG, QD (8 H LATER)
     Route: 048
     Dates: start: 20240917, end: 202505
  3. SODIUM CHLORIDE [Concomitant]
     Active Substance: SODIUM CHLORIDE
     Indication: Product used for unknown indication
     Route: 065

REACTIONS (5)
  - Cyst rupture [Not Recovered/Not Resolved]
  - Pain [Unknown]
  - Urine analysis abnormal [Not Recovered/Not Resolved]
  - Haematuria [Not Recovered/Not Resolved]
  - Underdose [Unknown]

NARRATIVE: CASE EVENT DATE: 20240917
